FAERS Safety Report 5821314-4 (Version None)
Quarter: 2008Q3

REPORT INFORMATION
  Report Type: 
  Country: None (occurrence: None)
  Receive Date: 20080724
  Receipt Date: 20080711
  Transmission Date: 20090109
  Serious: Yes (Hospitalization)
  Sender: FDA-Public Use
  Company Number: GB-MERCK-0807GBR00062

PATIENT
  Age: 13 Year
  Sex: Male

DRUGS (2)
  1. HYDROCORTONE [Suspect]
     Route: 061
  2. HYDROCORTONE [Suspect]
     Route: 061

REACTIONS (3)
  - CATARACT [None]
  - ENDOPHTHALMITIS [None]
  - POSTERIOR CAPSULE OPACIFICATION [None]
